FAERS Safety Report 5068505-0 (Version None)
Quarter: 2006Q3

REPORT INFORMATION
  Report Type: 
  Country: None (occurrence: None)
  Receive Date: 20060802
  Receipt Date: 20051027
  Transmission Date: 20061208
  Serious: No
  Sender: FDA-Public Use
  Company Number: US-BRISTOL-MYERS SQUIBB COMPANY-13160106

PATIENT
  Age: 84 Year
  Sex: Male
  Weight: 82 kg

DRUGS (1)
  1. COUMADIN [Suspect]
     Indication: ATRIAL FIBRILLATION
     Dosage: BEGAN 4 MONTHS AGO
     Dates: start: 20050101

REACTIONS (3)
  - DIZZINESS [None]
  - DYSPNOEA [None]
  - STOMACH DISCOMFORT [None]
